FAERS Safety Report 14601350 (Version 2)
Quarter: 2018Q1

REPORT INFORMATION
  Report Type: Spontaneous
  Country: DK (occurrence: DK)
  Receive Date: 20180305
  Receipt Date: 20180319
  Transmission Date: 20180509
  Serious: Yes (Other)
  Sender: FDA-Public Use
  Company Number: DK-ABBVIE-18K-044-2274320-00

PATIENT
  Age: 63 Year
  Sex: Female

DRUGS (8)
  1. HUMIRA [Suspect]
     Active Substance: ADALIMUMAB
     Indication: CROHN^S DISEASE
     Dosage: DOSAGE FORM: UNSPECIFIED
     Route: 058
     Dates: start: 20141101, end: 20171201
  2. REMICADE [Suspect]
     Active Substance: INFLIXIMAB
     Indication: CROHN^S DISEASE
     Dosage: DOSAGE FORM: LYOPHILIZED POWDER
     Route: 042
     Dates: start: 20140801, end: 20141101
  3. ZINC OXIDE. [Concomitant]
     Active Substance: ZINC OXIDE
     Indication: ZINC DEFICIENCY
     Route: 048
     Dates: start: 20140708
  4. MERCAPTOPURINE. [Concomitant]
     Active Substance: MERCAPTOPURINE
     Indication: PRODUCT USED FOR UNKNOWN INDICATION
     Dosage: DOSAGE FORM: UNSPECIFIED
     Route: 065
  5. VAGIFEM [Concomitant]
     Active Substance: ESTRADIOL
     Indication: PRODUCT USED FOR UNKNOWN INDICATION
     Dosage: DOSAGE FORM: UNSPECIFIED
     Route: 067
     Dates: start: 20131210
  6. VIBEDEN [Concomitant]
     Indication: VITAMIN B12 DEFICIENCY
     Dosage: DOSAGE FORM: UNSPECIFIED
     Route: 030
     Dates: start: 20140708
  7. PYRIDOXIN HYDROCHLORIDE [Concomitant]
     Indication: PRODUCT USED FOR UNKNOWN INDICATION
     Route: 048
     Dates: start: 20140708
  8. UNIKALK BASIC [Concomitant]
     Indication: CROHN^S DISEASE
     Dosage: DOSAGE FORM: UNSPECIFIED
     Route: 048
     Dates: start: 20110906

REACTIONS (10)
  - Tonsil cancer [Unknown]
  - Lymphadenopathy [Unknown]
  - Facial asymmetry [Unknown]
  - Ear pain [Unknown]
  - Metastatic squamous cell carcinoma [Unknown]
  - Metastases to lymph nodes [Unknown]
  - Throat tightness [Unknown]
  - Ear pain [Unknown]
  - Pharyngeal oedema [Unknown]
  - Mouth ulceration [Unknown]

NARRATIVE: CASE EVENT DATE: 20171001
